FAERS Safety Report 15416663 (Version 2)
Quarter: 2019Q1

REPORT INFORMATION
  Report Type: Spontaneous
  Country: IN (occurrence: IN)
  Receive Date: 20180924
  Receipt Date: 20190313
  Transmission Date: 20190417
  Serious: Yes (Other)
  Sender: FDA-Public Use
  Company Number: IN-ACCORD-072136

PATIENT
  Age: 38 Year
  Sex: Male

DRUGS (2)
  1. TOPIRAMATE. [Suspect]
     Active Substance: TOPIRAMATE
     Indication: HEADACHE
     Route: 048
  2. ATROPINE/ATROPINE METHONITRATE/ATROPINE METHYLBROMIDE/ATROPINE N-OXIDE HYDROCHLORIDE/ATROPINE SULFAT [Concomitant]
     Indication: GLAUCOMA

REACTIONS (7)
  - Chorioretinopathy [Recovered/Resolved]
  - Hypermetropia [Recovered/Resolved]
  - Angle closure glaucoma [Recovered/Resolved]
  - Retinal detachment [Recovered/Resolved]
  - Myopia [Recovered/Resolved]
  - Maculopathy [Unknown]
  - Choroidal effusion [Recovered/Resolved]
